FAERS Safety Report 13263253 (Version 1)
Quarter: 2017Q1

REPORT INFORMATION
  Report Type: Spontaneous
  Country: US (occurrence: US)
  Receive Date: 20170223
  Receipt Date: 20170223
  Transmission Date: 20170428
  Serious: Yes (Other)
  Sender: FDA-Public Use
  Company Number: US-OREXIGEN THERAPEUTICS, INC.-1063498

PATIENT
  Age: 37 Year
  Sex: Female
  Weight: 87.98 kg

DRUGS (1)
  1. CONTRAVE [Suspect]
     Active Substance: BUPROPION HYDROCHLORIDE\NALTREXONE HYDROCHLORIDE
     Indication: WEIGHT CONTROL
     Route: 048
     Dates: start: 20170206, end: 20170209

REACTIONS (7)
  - Feeling abnormal [Unknown]
  - Mental disorder [Unknown]
  - Anxiety [Unknown]
  - Homicidal ideation [Unknown]
  - Drug titration error [Unknown]
  - Panic reaction [Unknown]
  - Suicidal ideation [Unknown]

NARRATIVE: CASE EVENT DATE: 20170206
